FAERS Safety Report 23745630 (Version 1)
Quarter: 2024Q2

REPORT INFORMATION
  Report Type: Spontaneous
  Country: GB (occurrence: GB)
  Receive Date: 20240416
  Receipt Date: 20240416
  Transmission Date: 20240716
  Serious: Yes (Other)
  Sender: FDA-Public Use
  Company Number: None

PATIENT
  Age: 31 Year
  Sex: Female

DRUGS (2)
  1. ARIPIPRAZOLE [Suspect]
     Active Substance: ARIPIPRAZOLE
     Indication: Brief psychotic disorder, with postpartum onset
     Dosage: 5 MILLIGRAM (TABLET)
     Route: 065
  2. ARIPIPRAZOLE [Suspect]
     Active Substance: ARIPIPRAZOLE
     Dosage: UNK (DOSE REDUCED)
     Route: 065

REACTIONS (1)
  - Gambling [Not Recovered/Not Resolved]

NARRATIVE: CASE EVENT DATE: 20230101
